FAERS Safety Report 13189755 (Version 1)
Quarter: 2017Q1

REPORT INFORMATION
  Report Type: Spontaneous
  Country: GB (occurrence: GB)
  Receive Date: 20170206
  Receipt Date: 20170206
  Transmission Date: 20170428
  Serious: Yes (Other)
  Sender: FDA-Public Use
  Company Number: GB-PFIZER INC-2017044611

PATIENT
  Age: 61 Year
  Sex: Male

DRUGS (2)
  1. INLYTA [Suspect]
     Active Substance: AXITINIB
     Indication: METASTATIC RENAL CELL CARCINOMA
     Dosage: 4 MG, TWICE DAILY
     Route: 048
     Dates: start: 20160210
  2. TACROLIMUS. [Concomitant]
     Active Substance: TACROLIMUS
     Indication: PROPHYLAXIS AGAINST TRANSPLANT REJECTION
     Dosage: UNK

REACTIONS (2)
  - Angina pectoris [Recovered/Resolved]
  - Troponin increased [Unknown]

NARRATIVE: CASE EVENT DATE: 20161108
